FAERS Safety Report 24978561 (Version 2)
Quarter: 2025Q1

REPORT INFORMATION
  Report Type: Report from Study
  Country: US (occurrence: US)
  Receive Date: 20250218
  Receipt Date: 20250312
  Transmission Date: 20250409
  Serious: Yes (Other)
  Sender: ALEXION PHARMACEUTICALS
  Company Number: US-AstraZeneca-CH-00805389A

PATIENT

DRUGS (2)
  1. ULTOMIRIS [Suspect]
     Active Substance: RAVULIZUMAB-CWVZ
     Route: 065
  2. SOLIRIS [Suspect]
     Active Substance: ECULIZUMAB
     Route: 065

REACTIONS (10)
  - Blindness [Not Recovered/Not Resolved]
  - Cataract [Unknown]
  - Muscular weakness [Unknown]
  - Therapeutic response shortened [Unknown]
  - Symptom recurrence [Unknown]
  - Swelling face [Unknown]
  - Eyelid ptosis [Unknown]
  - Weight increased [Unknown]
  - Neck pain [Unknown]
  - Facial paresis [Unknown]
